FAERS Safety Report 8570136-2 (Version None)
Quarter: 2012Q3

REPORT INFORMATION
  Report Type: 
  Country: None (occurrence: None)
  Receive Date: 20120803
  Receipt Date: 20120726
  Transmission Date: 20120928
  Serious: Yes (Other)
  Sender: FDA-Public Use
  Company Number: ES-ABBOTT-12P-144-0956386-01

PATIENT
  Age: 58 Year
  Sex: Male

DRUGS (7)
  1. AZATHIOPRINE [Concomitant]
     Indication: CROHN'S DISEASE
     Route: 048
  2. HUMIRA [Suspect]
     Indication: CROHN'S DISEASE
     Dosage: 160 MG BASELINE/80 MG WEEK 2
     Route: 058
     Dates: start: 20070907
  3. HUMIRA [Suspect]
     Route: 058
     Dates: end: 20090630
  4. MESALAZINA [Concomitant]
     Indication: CROHN'S DISEASE
     Route: 048
  5. PROPRANOLOL HYDROCHLORIDE [Concomitant]
     Indication: HEADACHE
     Dates: start: 20100401
  6. CERTOLIZUMAB [Concomitant]
     Indication: CROHN'S DISEASE
  7. MERCAPTOPURINE [Concomitant]
     Indication: CROHN'S DISEASE

REACTIONS (1)
  - CROHN'S DISEASE [None]
